FAERS Safety Report 8298610-7 (Version None)
Quarter: 2012Q2

REPORT INFORMATION
  Report Type: 
  Country: None (occurrence: None)
  Receive Date: 20120417
  Receipt Date: 20120402
  Transmission Date: 20120825
  Serious: Yes (Death)
  Sender: FDA-Public Use
  Company Number: JP-2012-14860

PATIENT
  Age: 88 Year
  Sex: Male

DRUGS (3)
  1. SAMSCA [Suspect]
     Indication: FLUID RETENTION
     Dosage: 7.5 MG MILLIGRAM(S), QAM, ORAL
     Route: 048
     Dates: start: 20120124, end: 20120129
  2. TORSEMIDE [Concomitant]
  3. ALDACTONE [Concomitant]

REACTIONS (1)
  - CEREBRAL INFARCTION [None]
